FAERS Safety Report 7753548-6 (Version None)
Quarter: 2011Q3

REPORT INFORMATION
  Report Type: 
  Country: None (occurrence: None)
  Receive Date: 20110915
  Receipt Date: 20110913
  Transmission Date: 20111222
  Serious: Yes (Hospitalization)
  Sender: FDA-Public Use
  Company Number: DE-ABBOTT-11P-062-0729325-00

PATIENT
  Sex: Male

DRUGS (5)
  1. HUMIRA [Suspect]
     Indication: CROHN'S DISEASE
     Route: 058
     Dates: start: 20110324, end: 20110525
  2. HUMIRA [Suspect]
     Dosage: 40 MG Q 1-2 WEEKS
     Route: 058
  3. HUMIRA [Suspect]
     Route: 058
     Dates: start: 20110526
  4. FERROUS SULFATE TAB [Concomitant]
     Dosage: INJECTION FOR INFUSION
     Dates: start: 20110801
  5. PREDNISOLONE [Concomitant]
     Indication: PRODUCT USED FOR UNKNOWN INDICATION

REACTIONS (6)
  - FATIGUE [None]
  - CROHN'S DISEASE [None]
  - DRUG INEFFECTIVE [None]
  - DIARRHOEA HAEMORRHAGIC [None]
  - GASTROINTESTINAL INFLAMMATION [None]
  - ARTHRALGIA [None]
